FAERS Safety Report 22383660 (Version 1)
Quarter: 2023Q2

REPORT INFORMATION
  Report Type: Spontaneous
  Country: US (occurrence: None)
  Receive Date: 20230526
  Receipt Date: 20230526
  Transmission Date: 20230722
  Serious: No
  Sender: FDA-Public Use
  Company Number: None

PATIENT
  Sex: Male

DRUGS (1)
  1. LENALIDOMIDE [Suspect]
     Active Substance: LENALIDOMIDE
     Dosage: OTHER QUANTITY : 1C;?FREQUENCY : DAILY;?
     Route: 048

REACTIONS (4)
  - Haematuria [None]
  - Arthralgia [None]
  - Decreased appetite [None]
  - Weight decreased [None]
